FAERS Safety Report 14080633 (Version 1)
Quarter: 2017Q4

REPORT INFORMATION
  Report Type: Report from Study
  Country: JP (occurrence: JP)
  Receive Date: 20171012
  Receipt Date: 20171012
  Transmission Date: 20180321
  Serious: Yes (Death, Life-Threatening, Other)
  Sender: FDA-Public Use
  Company Number: JP-BRISTOL-MYERS SQUIBB COMPANY-12181145

PATIENT
  Age: 53 Year
  Sex: Male

DRUGS (14)
  1. PREDNISOLONE. [Concomitant]
     Active Substance: PREDNISOLONE
     Indication: PRODUCT USED FOR UNKNOWN INDICATION
     Dosage: 10 MG, UNK
     Route: 048
     Dates: start: 20020906, end: 20020915
  2. EPIVIR [Suspect]
     Active Substance: LAMIVUDINE
     Indication: HIV INFECTION
     Dosage: INTERRUPTED FROM 21-SEP-2002 TO 05-NOV-2002
     Route: 048
     Dates: start: 20020906, end: 20030104
  3. EFAVIRENZ. [Suspect]
     Active Substance: EFAVIRENZ
     Indication: HIV INFECTION
     Dosage: 600 MG, UNK
     Route: 048
     Dates: start: 20020906, end: 20020918
  4. ZITHROMAC [Suspect]
     Active Substance: AZITHROMYCIN DIHYDRATE
     Indication: PRODUCT USED FOR UNKNOWN INDICATION
     Dosage: 1.2 G, QD
     Route: 048
  5. SULPIRIDE [Suspect]
     Active Substance: SULPIRIDE
     Indication: GASTRIC ULCER
     Dosage: 50 MG, TID
     Route: 065
     Dates: start: 20021120, end: 20021124
  6. EPIVIR [Suspect]
     Active Substance: LAMIVUDINE
     Indication: ACQUIRED IMMUNODEFICIENCY SYNDROME
     Route: 065
  7. EFAVIRENZ. [Suspect]
     Active Substance: EFAVIRENZ
     Indication: ACQUIRED IMMUNODEFICIENCY SYNDROME
     Route: 065
  8. KALETRA [Suspect]
     Active Substance: LOPINAVIR\RITONAVIR
     Indication: HIV INFECTION
     Dosage: 3 DF, BID
     Route: 048
     Dates: start: 20021106, end: 20030104
  9. PIRENZEPINE HCL [Concomitant]
     Indication: UPPER GASTROINTESTINAL HAEMORRHAGE
     Dosage: 40 MG, QD
     Route: 065
     Dates: start: 20020906, end: 20030107
  10. ZERIT [Suspect]
     Active Substance: STAVUDINE
     Indication: HIV INFECTION
     Dosage: INTERRUPTED FROM 21-SEP-2002 TO 05-NOV-2002
     Route: 048
     Dates: start: 20020906, end: 20030104
  11. ZERIT [Suspect]
     Active Substance: STAVUDINE
     Indication: ACQUIRED IMMUNODEFICIENCY SYNDROME
     Route: 065
  12. KALETRA [Suspect]
     Active Substance: LOPINAVIR\RITONAVIR
     Indication: ACQUIRED IMMUNODEFICIENCY SYNDROME
     Route: 065
  13. PIRENZEPINE HCL [Concomitant]
     Indication: GASTRITIS
     Route: 065
  14. CRAVIT [Suspect]
     Active Substance: LEVOFLOXACIN
     Indication: COLITIS
     Dosage: 300 MG, QD
     Route: 048
     Dates: start: 20020909, end: 20020917

REACTIONS (2)
  - Pancytopenia [Fatal]
  - Dysgeusia [Recovering/Resolving]

NARRATIVE: CASE EVENT DATE: 20020909
